FAERS Safety Report 15620777 (Version 1)
Quarter: 2018Q4

REPORT INFORMATION
  Report Type: Report from Study
  Country: US (occurrence: US)
  Receive Date: 20181115
  Receipt Date: 20181115
  Transmission Date: 20190205
  Serious: Yes (Death, Life-Threatening, Hospitalization)
  Sender: FDA-Public Use
  Company Number: US-JNJFOC-20160914348

PATIENT
  Age: 75 Year
  Sex: Female

DRUGS (19)
  1. MEDROL [Concomitant]
     Active Substance: METHYLPREDNISOLONE
  2. SINEMET [Concomitant]
     Active Substance: CARBIDOPA\LEVODOPA
  3. ASPIRIN. [Concomitant]
     Active Substance: ASPIRIN
  4. PANTOPRAZOLE [Concomitant]
     Active Substance: PANTOPRAZOLE
  5. LIPITOR [Concomitant]
     Active Substance: ATORVASTATIN CALCIUM
  6. ROPINIROLE. [Concomitant]
     Active Substance: ROPINIROLE
  7. HYDROCORTISONE-NEOMYCIN-POLYMYXIN B [Concomitant]
     Active Substance: HYDROCORTISONE\NEOMYCIN\POLYMYXIN B
  8. PROAIR HFA [Concomitant]
     Active Substance: ALBUTEROL SULFATE
  9. PROTONIX [Concomitant]
     Active Substance: PANTOPRAZOLE SODIUM
  10. IMBRUVICA [Suspect]
     Active Substance: IBRUTINIB
     Indication: CHRONIC LYMPHOCYTIC LEUKAEMIA
     Route: 048
     Dates: start: 20160805, end: 20160904
  11. SPIRIVA [Concomitant]
     Active Substance: TIOTROPIUM BROMIDE MONOHYDRATE
  12. AMOXICILLIN AND CLAVULA. POTASSIUM /02043401/ [Concomitant]
     Active Substance: AMOXICILLIN\CLAVULANATE POTASSIUM
  13. GLIPIZIDE. [Concomitant]
     Active Substance: GLIPIZIDE
  14. PREDNISONE. [Concomitant]
     Active Substance: PREDNISONE
  15. VESICARE [Concomitant]
     Active Substance: SOLIFENACIN SUCCINATE
     Dates: start: 201609
  16. IPRATROPIUM BROMIDE. [Concomitant]
     Active Substance: IPRATROPIUM BROMIDE
  17. ADVAIR HFA [Concomitant]
     Active Substance: FLUTICASONE PROPIONATE\SALMETEROL XINAFOATE
  18. ALBUTEROL SULFATE. [Concomitant]
     Active Substance: ALBUTEROL SULFATE
  19. LEXAPRO [Concomitant]
     Active Substance: ESCITALOPRAM OXALATE

REACTIONS (3)
  - Staphylococcal sepsis [Not Recovered/Not Resolved]
  - Aspergillus infection [Fatal]
  - Dyspnoea [Fatal]

NARRATIVE: CASE EVENT DATE: 20160903
